FAERS Safety Report 7328978-7 (Version None)
Quarter: 2011Q1

REPORT INFORMATION
  Report Type: 
  Country: None (occurrence: None)
  Receive Date: 20110225
  Receipt Date: 20110225
  Transmission Date: 20110831
  Serious: Yes (Hospitalization, Other)
  Sender: FDA-Public Use
  Company Number: None

PATIENT
  Age: 70 Year
  Sex: Female
  Weight: 65.7716 kg

DRUGS (1)
  1. AMOX/CLAV K 875-125MGTABLET 125MG SANDO [Suspect]
     Indication: EAR INFECTION
     Dosage: 125MG 2 TIMES DAILY
     Dates: start: 20110210, end: 20110215

REACTIONS (2)
  - DIARRHOEA HAEMORRHAGIC [None]
  - ABDOMINAL PAIN UPPER [None]
